FAERS Safety Report 17805598 (Version 1)
Quarter: 2020Q2

REPORT INFORMATION
  Report Type: Spontaneous
  Country: US (occurrence: US)
  Receive Date: 20200519
  Receipt Date: 20200519
  Transmission Date: 20200714
  Serious: Yes (Other)
  Sender: FDA-Public Use
  Company Number: US-INCYTE CORPORATION-2020IN004542

PATIENT

DRUGS (1)
  1. JAKAFI [Suspect]
     Active Substance: RUXOLITINIB
     Indication: NEOPLASM MALIGNANT
     Dosage: 25 MILLIGRAM, Q12H
     Route: 048
     Dates: start: 20191114

REACTIONS (6)
  - Localised infection [Recovered/Resolved]
  - Product dose omission [Unknown]
  - Off label use [Unknown]
  - Leukaemia [Recovered/Resolved]
  - Synovial cyst [Recovered/Resolved]
  - Synovial rupture [Recovered/Resolved]

NARRATIVE: CASE EVENT DATE: 20191114
